FAERS Safety Report 5522035-8 (Version None)
Quarter: 2007Q4

REPORT INFORMATION
  Report Type: 
  Country: None (occurrence: None)
  Receive Date: 20071120
  Receipt Date: 20071119
  Transmission Date: 20080405
  Serious: Yes (Other)
  Sender: FDA-Public Use
  Company Number: A0688345A

PATIENT
  Sex: Male

DRUGS (3)
  1. NICORETTE [Suspect]
     Indication: SMOKING CESSATION THERAPY
     Dosage: 2MG FIFTEEN TIMES PER DAY
     Route: 002
     Dates: start: 20000101
  2. RANITIDINE HCL [Concomitant]
     Route: 048
  3. ALPRAZOLAM [Concomitant]
     Route: 048

REACTIONS (3)
  - DEPENDENCE [None]
  - DRUG DEPENDENCE [None]
  - INTENTIONAL DRUG MISUSE [None]
